FAERS Safety Report 16129378 (Version 3)
Quarter: 2020Q4

REPORT INFORMATION
  Report Type: Spontaneous
  Country: IE (occurrence: IE)
  Receive Date: 20190328
  Receipt Date: 20201221
  Transmission Date: 20210113
  Serious: Yes (Death, Other)
  Sender: FDA-Public Use
  Company Number: IE-GILEAD-2019-0398892

PATIENT
  Age: 49 Year
  Sex: Male

DRUGS (8)
  1. HALCION [Concomitant]
     Active Substance: TRIAZOLAM
     Indication: INSOMNIA
     Dosage: UNK
     Dates: end: 20190313
  2. MIRTAZAPINE. [Concomitant]
     Active Substance: MIRTAZAPINE
     Dosage: UNK
     Dates: end: 20190313
  3. PALEXIA [Concomitant]
     Active Substance: TAPENTADOL HYDROCHLORIDE
     Dosage: COMPLIANCE UNKNOWN
     Dates: end: 20190313
  4. MIRTAZAPINE. [Concomitant]
     Active Substance: MIRTAZAPINE
     Indication: AFFECTIVE DISORDER
     Dosage: UNK
     Dates: end: 20190313
  5. PALEXIA [Concomitant]
     Active Substance: TAPENTADOL HYDROCHLORIDE
     Indication: PAIN
     Dosage: COMPLIANCE UNKNOWN
  6. DIAZEPAM. [Concomitant]
     Active Substance: DIAZEPAM
     Indication: ANXIETY
     Dosage: COMPLIANCE UNKNOWN
     Dates: end: 20190313
  7. QUETIAPINE. [Concomitant]
     Active Substance: QUETIAPINE
     Indication: AFFECTIVE DISORDER
     Dosage: COMPLIANCE UNKNOWN
     Dates: end: 20190313
  8. HARVONI [Suspect]
     Active Substance: LEDIPASVIR\SOFOSBUVIR
     Indication: HEPATITIS C
     Dosage: 1 DOSAGE FORM, QD
     Route: 048
     Dates: start: 20190220, end: 20190313

REACTIONS (3)
  - Hanging [Fatal]
  - Asphyxia [Fatal]
  - Completed suicide [Fatal]

NARRATIVE: CASE EVENT DATE: 20190313
